FAERS Safety Report 18846407 (Version 1)
Quarter: 2021Q1

REPORT INFORMATION
  Report Type: Spontaneous
  Country: US (occurrence: US)
  Receive Date: 20210204
  Receipt Date: 20210204
  Transmission Date: 20210419
  Serious: Yes (Other)
  Sender: FDA-Public Use
  Company Number: None

PATIENT
  Age: 56 Year
  Sex: Male
  Weight: 76.5 kg

DRUGS (4)
  1. DESVENFLAXINE 50 MG PO DAILY [Concomitant]
     Active Substance: DESVENLAFAXINE
     Dates: start: 20190909
  2. CHANTIX [Suspect]
     Active Substance: VARENICLINE TARTRATE
     Indication: SMOKING CESSATION THERAPY
     Route: 048
     Dates: start: 20200520
  3. CLONAZEPAM 0.25 MG PO BID [Concomitant]
     Dates: start: 20180806
  4. PROPRANOLOL ER 60 MG PO DAILY [Concomitant]
     Dates: start: 20190909

REACTIONS (5)
  - Hostility [None]
  - Behaviour disorder [None]
  - Therapy cessation [None]
  - Agitation [None]
  - Paranoia [None]

NARRATIVE: CASE EVENT DATE: 20201224
